FAERS Safety Report 5372439-1 (Version None)
Quarter: 2007Q2

REPORT INFORMATION
  Report Type: 
  Country: None (occurrence: None)
  Receive Date: 20070615
  Receipt Date: 20061031
  Transmission Date: 20071010
  Serious: Yes (Other)
  Sender: FDA-Public Use
  Company Number: 200610433US

PATIENT
  Age: 63 Year
  Sex: Female

DRUGS (10)
  1. LANTUS [Suspect]
     Indication: DIABETES MELLITUS NON-INSULIN-DEPENDENT
     Dosage: 25 U QD
     Dates: start: 20051101
  2. OPTICLIK [Suspect]
     Indication: DIABETES MELLITUS NON-INSULIN-DEPENDENT
  3. NOVOLOG [Concomitant]
  4. DILTIAZEM (CARDIZEM /00489701/) [Concomitant]
  5. SULAR [Concomitant]
  6. METOPROLOL SUCCINATE (TOPROL) [Concomitant]
  7. LEVOTHYROXINE SODIUM (LEVOXYL) [Concomitant]
  8. LOVASTATIN [Concomitant]
  9. NIACIN [Concomitant]
  10. ASPIRIN [Concomitant]

REACTIONS (2)
  - BLOOD GLUCOSE INCREASED [None]
  - HYPERGLYCAEMIA [None]
